FAERS Safety Report 6961174-1 (Version None)
Quarter: 2010Q3

REPORT INFORMATION
  Report Type: 
  Country: None (occurrence: None)
  Receive Date: 20100901
  Receipt Date: 20100825
  Transmission Date: 20110219
  Serious: Yes (Hospitalization)
  Sender: FDA-Public Use
  Company Number: DE-BRISTOL-MYERS SQUIBB COMPANY-14680912

PATIENT
  Age: 70 Year
  Sex: Female

DRUGS (4)
  1. CETUXIMAB [Suspect]
     Indication: COLORECTAL CANCER
     Dosage: RECENT INFUSION ON 15JUN09
     Route: 042
     Dates: start: 20080627
  2. IRINOTECAN HCL [Suspect]
     Indication: COLORECTAL CANCER
     Dosage: RECENT INFUSION ON 15JUN09
     Route: 042
     Dates: start: 20080627
  3. FLUOROURACIL [Suspect]
     Indication: COLORECTAL CANCER
     Dosage: ALSO GIVEN 660MG VIA INTRAVENOUS BOLUS,RECENT INFUSION ON 15JUN09
     Route: 042
     Dates: start: 20080627
  4. LEUCOVORIN CALCIUM [Suspect]
     Indication: COLORECTAL CANCER
     Dosage: RECENT INFUSION ON 15JUN09
     Route: 042
     Dates: start: 20080627

REACTIONS (3)
  - LEUKOPENIA [None]
  - PYREXIA [None]
  - SYNCOPE [None]
